FAERS Safety Report 13143626 (Version 1)
Quarter: 2017Q1

REPORT INFORMATION
  Report Type: Spontaneous
  Country: US (occurrence: US)
  Receive Date: 20170124
  Receipt Date: 20170124
  Transmission Date: 20170428
  Serious: No
  Sender: FDA-Public Use
  Company Number: US-BAUSCH-BL-2016-009576

PATIENT
  Age: 74 Year
  Sex: Male

DRUGS (1)
  1. ALAWAY [Suspect]
     Active Substance: KETOTIFEN FUMARATE
     Indication: EYE PRURITUS
     Route: 047
     Dates: start: 20160418, end: 20160419

REACTIONS (4)
  - Eyelid oedema [Recovered/Resolved]
  - Eyelash discolouration [Not Recovered/Not Resolved]
  - Eye irritation [Recovered/Resolved]
  - Drug ineffective [Unknown]

NARRATIVE: CASE EVENT DATE: 20160418
